FAERS Safety Report 13433268 (Version 1)
Quarter: 2017Q2

REPORT INFORMATION
  Report Type: Spontaneous
  Country: US (occurrence: US)
  Receive Date: 20170412
  Receipt Date: 20170412
  Transmission Date: 20170830
  Serious: Yes (Hospitalization, Other)
  Sender: FDA-Public Use
  Company Number: US-ZYDUS-014524

PATIENT
  Age: 15 Year
  Sex: Female

DRUGS (3)
  1. LORATADINE. [Suspect]
     Active Substance: LORATADINE
     Indication: PRODUCT USED FOR UNKNOWN INDICATION
     Route: 048
  2. DEXTROAMPHETAMINE. [Suspect]
     Active Substance: DEXTROAMPHETAMINE
     Indication: PRODUCT USED FOR UNKNOWN INDICATION
     Route: 048
  3. SERTRALINE [Suspect]
     Active Substance: SERTRALINE HYDROCHLORIDE
     Indication: PRODUCT USED FOR UNKNOWN INDICATION
     Route: 048

REACTIONS (12)
  - Stress cardiomyopathy [Unknown]
  - Sinus tachycardia [Unknown]
  - Ejection fraction decreased [Recovered/Resolved]
  - Suicide attempt [Unknown]
  - Ventricular dyskinesia [Unknown]
  - Electrocardiogram QT prolonged [Recovered/Resolved]
  - Intentional overdose [Unknown]
  - Troponin T increased [Recovered/Resolved]
  - Tachycardia [Unknown]
  - Chest pain [Unknown]
  - Electrocardiogram ST segment depression [Unknown]
  - Left ventricular dysfunction [Recovered/Resolved]
